FAERS Safety Report 23574553 (Version 1)
Quarter: 2024Q1

REPORT INFORMATION
  Report Type: Spontaneous
  Country: CN (occurrence: CN)
  Receive Date: 20240228
  Receipt Date: 20240228
  Transmission Date: 20240410
  Serious: Yes (Hospitalization, Other)
  Sender: FDA-Public Use
  Company Number: CN-MLMSERVICE-20240214-4826087-1

PATIENT
  Age: 27 Year
  Sex: Male

DRUGS (7)
  1. CISPLATIN [Suspect]
     Active Substance: CISPLATIN
     Indication: Choriocarcinoma
     Dosage: 20 MG/M2 ON DAY-1 TO DAY 04, AT 3 WEEKS INTERVAL.
     Dates: start: 202211, end: 202304
  2. ETOPOSIDE [Suspect]
     Active Substance: ETOPOSIDE
     Indication: Retroperitoneal neoplasm metastatic
     Dosage: 75MG/M2  ON DAY-1 TO DAY 04, AT 3 WEEKS INTERVAL.
     Dates: start: 202211, end: 202304
  3. PENPULIMAB [Suspect]
     Active Substance: PENPULIMAB
     Indication: Choriocarcinoma
     Dosage: ON DAY 1 AT 3 WEEK INTERVAL.
     Dates: start: 202211, end: 202304
  4. CYCLOPHOSPHAMIDE [Suspect]
     Active Substance: CYCLOPHOSPHAMIDE
     Indication: Retroperitoneal neoplasm metastatic
     Dosage: 4.8 G/M2, 1.2 G/M2 ON DAY-1 TO DAY 04, AT 3 WEEKS INTERVAL.
     Dates: start: 202211, end: 202304
  5. CISPLATIN [Suspect]
     Active Substance: CISPLATIN
     Indication: Metastases to liver
     Dosage: 20 MG/M2 ON DAY-1 TO DAY 04, AT 3 WEEKS INTERVAL.
     Dates: start: 202211, end: 202304
  6. PENPULIMAB [Suspect]
     Active Substance: PENPULIMAB
     Indication: Metastases to lung
     Dosage: ON DAY 1 AT 3 WEEK INTERVAL.
     Dates: start: 202211, end: 202304
  7. ETOPOSIDE [Suspect]
     Active Substance: ETOPOSIDE
     Indication: Metastases to lung
     Dosage: 75MG/M2  ON DAY-1 TO DAY 04, AT 3 WEEKS INTERVAL.
     Dates: start: 202211, end: 202304

REACTIONS (2)
  - Myelosuppression [Recovered/Resolved]
  - Gastrointestinal disorder [Recovered/Resolved]
